FAERS Safety Report 13845469 (Version 1)
Quarter: 2017Q3

REPORT INFORMATION
  Report Type: Spontaneous
  Country: US (occurrence: US)
  Receive Date: 20170808
  Receipt Date: 20170808
  Transmission Date: 20171127
  Serious: No
  Sender: FDA-Public Use
  Company Number: US-ROCHE-792931

PATIENT
  Sex: Female

DRUGS (1)
  1. BONIVA [Suspect]
     Active Substance: IBANDRONATE SODIUM
     Indication: PRODUCT USED FOR UNKNOWN INDICATION
     Dosage: THERAPY DATES MENTIONED AS 4, 5 MONTHS.?DRUG DOSE, FORM AND ROUTE NOT REPORTED
     Route: 065

REACTIONS (2)
  - Oesophagitis [Unknown]
  - Pharyngeal mass [Recovered/Resolved]
